FAERS Safety Report 5301926-7 (Version None)
Quarter: 2007Q2

REPORT INFORMATION
  Report Type: 
  Country: None (occurrence: None)
  Receive Date: 20070416
  Receipt Date: 20070416
  Transmission Date: 20071010
  Serious: Yes (Other)
  Sender: FDA-Public Use
  Company Number: None

PATIENT
  Age: 23 Year
  Sex: Female
  Weight: 61.2356 kg

DRUGS (2)
  1. BUPROPION HCL [Suspect]
     Indication: DEPRESSION
     Dosage: 300MG 1X/DAY PO
     Route: 048
     Dates: start: 20070305, end: 20070412
  2. BUPROPION HCL [Suspect]
     Indication: GENERALISED ANXIETY DISORDER
     Dosage: 300MG 1X/DAY PO
     Route: 048
     Dates: start: 20070305, end: 20070412

REACTIONS (20)
  - AGITATION [None]
  - ANXIETY [None]
  - ASTHENIA [None]
  - CRYING [None]
  - DECREASED INTEREST [None]
  - DEPRESSED MOOD [None]
  - FEELING ABNORMAL [None]
  - HEART RATE INCREASED [None]
  - INCREASED APPETITE [None]
  - INITIAL INSOMNIA [None]
  - IRRITABILITY [None]
  - MIDDLE INSOMNIA [None]
  - MIGRAINE [None]
  - MOOD SWINGS [None]
  - PARANOIA [None]
  - PHARMACEUTICAL PRODUCT COMPLAINT [None]
  - SUICIDAL IDEATION [None]
  - THERAPEUTIC RESPONSE UNEXPECTED WITH DRUG SUBSTITUTION [None]
  - TREMOR [None]
  - WEIGHT INCREASED [None]
